FAERS Safety Report 8835036 (Version 2)
Quarter: 2013Q1

REPORT INFORMATION
  Report Type: Report from Study
  Country: CA (occurrence: CA)
  Receive Date: 20121011
  Receipt Date: 20130128
  Transmission Date: 20140127
  Serious: Yes (Other)
  Sender: FDA-Public Use
  Company Number: CA-JNJFOC-20120912854

PATIENT
  Sex: Female
  Weight: 114.2 kg

DRUGS (5)
  1. REMICADE [Suspect]
     Indication: RHEUMATOID ARTHRITIS
     Route: 042
     Dates: start: 20091111
  2. THYROXINE [Concomitant]
     Route: 065
  3. ARAVA [Concomitant]
     Route: 065
  4. FLUOXETINE [Concomitant]
     Route: 065
  5. TORADOL [Concomitant]
     Route: 065

REACTIONS (1)
  - Neoplasm [Recovering/Resolving]
